FAERS Safety Report 8454872-4 (Version None)
Quarter: 2012Q2

REPORT INFORMATION
  Report Type: 
  Country: None (occurrence: None)
  Receive Date: 20120621
  Receipt Date: 20120611
  Transmission Date: 20120825
  Serious: Yes (Other)
  Sender: FDA-Public Use
  Company Number: US-BAYER-2011-120176

PATIENT
  Age: 28 Year
  Sex: Female
  Weight: 74.83 kg

DRUGS (13)
  1. PREVIDENT [Concomitant]
     Dosage: UNK
  2. BYETTA [Concomitant]
     Dosage: 250MCG/ML SOLUTION 10 MG
  3. YASMIN [Suspect]
     Indication: ACNE
     Dosage: UNK
     Dates: start: 20040101, end: 20060101
  4. YASMIN [Suspect]
     Indication: CONTRACEPTION
  5. YAZ [Suspect]
     Indication: CONTRACEPTION
     Dosage: UNK
     Dates: start: 20060101, end: 20060101
  6. HUMALOG [Concomitant]
  7. HYDROCODONE [Concomitant]
     Dosage: UNK
  8. HUMALOG [Concomitant]
     Dosage: 100 UNITS/ML 5 UNITS SLIDE SCALE
  9. LANTUS [Concomitant]
  10. ASPIRIN [Concomitant]
  11. YAZ [Suspect]
     Indication: ACNE
  12. HYDROCODONE [Concomitant]
     Dosage: 10-500MG
     Route: 048
  13. LANTUS [Concomitant]
     Dosage: 100 UNITS/ML, 30-35 UNITS, HS

REACTIONS (5)
  - RETINAL ARTERY OCCLUSION [None]
  - PAIN [None]
  - EMOTIONAL DISORDER [None]
  - INJURY [None]
  - ANXIETY [None]
